FAERS Safety Report 10184312 (Version 1)
Quarter: 2014Q2

REPORT INFORMATION
  Report Type: Spontaneous
  Country: US (occurrence: US)
  Receive Date: 20140520
  Receipt Date: 20140520
  Transmission Date: 20141212
  Serious: Yes (Death)
  Sender: FDA-Public Use
  Company Number: US-TAKEDA-2014TUS003951

PATIENT
  Sex: Female

DRUGS (2)
  1. BRINTELLIX [Suspect]
     Indication: MAJOR DEPRESSION
     Dosage: UNK
  2. SEVERAL OTHER MEDICATIONS [Concomitant]
     Dosage: UNK

REACTIONS (1)
  - Death [Fatal]
